FAERS Safety Report 23668819 (Version 1)
Quarter: 2024Q1

REPORT INFORMATION
  Report Type: Spontaneous
  Country: US (occurrence: US)
  Receive Date: 20240325
  Receipt Date: 20240325
  Transmission Date: 20240409
  Serious: No
  Sender: FDA-Public Use
  Company Number: US-BAYER-2024A040212

PATIENT
  Sex: Female

DRUGS (1)
  1. MIRENA [Suspect]
     Active Substance: LEVONORGESTREL
     Dosage: 20?G/DAY
     Route: 015
     Dates: start: 20240313, end: 20240313

REACTIONS (3)
  - Procedural pain [None]
  - Complication of device insertion [None]
  - Device deployment issue [None]

NARRATIVE: CASE EVENT DATE: 20240313
